FAERS Safety Report 18139720 (Version 1)
Quarter: 2020Q3

REPORT INFORMATION
  Report Type: Spontaneous
  Country: US (occurrence: US)
  Receive Date: 20200812
  Receipt Date: 20200812
  Transmission Date: 20201103
  Serious: Yes (Death)
  Sender: FDA-Public Use
  Company Number: None

PATIENT
  Age: 59 Year
  Sex: Male
  Weight: 99.3 kg

DRUGS (12)
  1. LEVOTHYROXINE. [Concomitant]
     Active Substance: LEVOTHYROXINE
     Dates: start: 20200806, end: 20200808
  2. NOREPINEPHRINE. [Concomitant]
     Active Substance: NOREPINEPHRINE
     Dates: start: 20200808, end: 20200811
  3. RAMPIRIL [Concomitant]
     Active Substance: RAMIPRIL
     Dates: start: 20200806, end: 20200808
  4. PROPOFOL. [Concomitant]
     Active Substance: PROPOFOL
     Dates: start: 20200808, end: 20200812
  5. BILVARUDIN [Concomitant]
     Dates: start: 20200811, end: 20200811
  6. ESCITALOPRAM [Concomitant]
     Active Substance: ESCITALOPRAM OXALATE
     Dates: start: 20200806, end: 20200808
  7. INSULIN [Concomitant]
     Active Substance: INSULIN NOS
     Dates: start: 20200806, end: 20200811
  8. REMDESIVIR. [Suspect]
     Active Substance: REMDESIVIR
     Indication: COVID-19
     Route: 041
     Dates: start: 20200807, end: 20200811
  9. OMEPRAZOLE. [Concomitant]
     Active Substance: OMEPRAZOLE
     Dates: start: 20200806, end: 20200808
  10. REMDESIVIR. [Suspect]
     Active Substance: REMDESIVIR
     Indication: COVID-19
     Route: 041
     Dates: start: 20200807, end: 20200811
  11. FENTANYL. [Concomitant]
     Active Substance: FENTANYL
     Dates: start: 20200808, end: 20200811
  12. METFORMIN [Concomitant]
     Active Substance: METFORMIN HYDROCHLORIDE
     Dates: start: 20200806, end: 20200808

REACTIONS (1)
  - Death [None]

NARRATIVE: CASE EVENT DATE: 20200812
